FAERS Safety Report 7117296-8 (Version None)
Quarter: 2010Q4

REPORT INFORMATION
  Report Type: 
  Country: None (occurrence: None)
  Receive Date: 20101122
  Receipt Date: 20101108
  Transmission Date: 20110411
  Serious: Yes (Hospitalization)
  Sender: FDA-Public Use
  Company Number: IN-ELI_LILLY_AND_COMPANY-IN201011001975

PATIENT
  Age: 55 Year
  Sex: Female

DRUGS (3)
  1. HUMINSULIN 30% REGULAR, 70% NPH [Suspect]
     Indication: DIABETES MELLITUS
     Dates: start: 20101025
  2. INSULIN [Concomitant]
  3. ORAL BLOOD GLUCOSE LOWERING DRUGS [Concomitant]

REACTIONS (3)
  - DIZZINESS [None]
  - FATIGUE [None]
  - VISUAL IMPAIRMENT [None]
